FAERS Safety Report 5626300-5 (Version None)
Quarter: 2008Q1

REPORT INFORMATION
  Report Type: 
  Country: None (occurrence: None)
  Receive Date: 20080214
  Receipt Date: 20080207
  Transmission Date: 20080703
  Serious: Yes (Other)
  Sender: FDA-Public Use
  Company Number: US-MERCK-0802USA01816

PATIENT
  Age: 66 Year
  Sex: Female

DRUGS (17)
  1. FOSAMAX [Suspect]
     Route: 048
  2. NOVOLIN N [Concomitant]
     Route: 065
  3. NOVOLIN R [Concomitant]
     Route: 065
  4. ASPIRIN [Concomitant]
     Route: 065
  5. LOPRESSOR [Concomitant]
     Route: 065
  6. LOPRESSOR [Concomitant]
     Route: 065
  7. ISOSORBIDE [Concomitant]
     Route: 065
  8. DITROPAN [Concomitant]
     Route: 065
  9. PLENDIL [Concomitant]
     Route: 065
  10. GASTROINTESTINAL PREPARATIONS (UNSPECIFIED) [Concomitant]
     Route: 065
  11. PRILOSEC [Concomitant]
     Route: 048
  12. LASIX [Concomitant]
     Route: 065
  13. ZOCOR [Concomitant]
     Route: 048
  14. NEURONTIN [Concomitant]
     Route: 065
  15. VICODIN [Concomitant]
     Route: 065
  16. CALCIUM (UNSPECIFIED) [Concomitant]
     Route: 065
  17. VITAMINS (UNSPECIFIED) [Concomitant]
     Route: 065

REACTIONS (3)
  - HIRSUTISM [None]
  - MYOCARDIAL INFARCTION [None]
  - THERAPEUTIC RESPONSE UNEXPECTED [None]
